FAERS Safety Report 15374423 (Version 1)
Quarter: 2018Q3

REPORT INFORMATION
  Report Type: Spontaneous
  Country: DE (occurrence: DE)
  Receive Date: 20180912
  Receipt Date: 20180912
  Transmission Date: 20181010
  Serious: Yes (Disabling, Other)
  Sender: FDA-Public Use
  Company Number: DE-TEVA-2018-DE-953606

PATIENT
  Age: 49 Year
  Sex: Female
  Weight: 59 kg

DRUGS (2)
  1. CIPROFLOXACIN. [Suspect]
     Active Substance: CIPROFLOXACIN
     Indication: COLITIS
     Route: 048
     Dates: start: 20171008
  2. IBUPROFEN. [Concomitant]
     Active Substance: IBUPROFEN

REACTIONS (16)
  - Gait disturbance [Unknown]
  - Asthenia [Recovered/Resolved]
  - Dyspepsia [Unknown]
  - Dizziness [Recovered/Resolved]
  - Sleep disorder [Unknown]
  - Hiatus hernia [Recovered/Resolved with Sequelae]
  - Dysgeusia [Recovered/Resolved]
  - Hypoglycaemia [Recovered/Resolved]
  - Polyneuropathy [Unknown]
  - Memory impairment [Unknown]
  - Confusional state [Recovered/Resolved]
  - Tendon pain [Not Recovered/Not Resolved]
  - Fatigue [Unknown]
  - Decreased appetite [Unknown]
  - Nausea [Unknown]
  - Visual impairment [Not Recovered/Not Resolved]

NARRATIVE: CASE EVENT DATE: 20171009
